FAERS Safety Report 10244433 (Version 1)
Quarter: 2014Q2

REPORT INFORMATION
  Report Type: Spontaneous
  Country: US (occurrence: None)
  Receive Date: 20140616
  Receipt Date: 20140616
  Transmission Date: 20141212
  Serious: Yes (Life-Threatening)
  Sender: FDA-Public Use
  Company Number: None

PATIENT
  Age: 69 Year
  Sex: Male
  Weight: 103.1 kg

DRUGS (2)
  1. METHADONE [Suspect]
     Indication: PAIN
     Route: 048
     Dates: start: 20031229, end: 20140504
  2. GABAPENTIN [Suspect]
     Route: 048
     Dates: start: 20000621, end: 20140504

REACTIONS (1)
  - Respiratory depression [None]
